FAERS Safety Report 4617843-1 (Version None)
Quarter: 2005Q1

REPORT INFORMATION
  Report Type: 
  Country: None (occurrence: None)
  Receive Date: 20050324
  Receipt Date: 20040304
  Transmission Date: 20050727
  Serious: Yes (Other)
  Sender: FDA-Public Use
  Company Number: SE-GLAXOSMITHKLINE-B0325672A

PATIENT
  Sex: Female

DRUGS (1)
  1. IMIGRAN [Suspect]
     Route: 048

REACTIONS (3)
  - CATARACT [None]
  - GLAUCOMA [None]
  - VISUAL ACUITY REDUCED [None]
